FAERS Safety Report 16358127 (Version 1)
Quarter: 2019Q2

REPORT INFORMATION
  Report Type: Spontaneous
  Country: US (occurrence: US)
  Receive Date: 20190418
  Receipt Date: 20190418
  Transmission Date: 20190711
  Serious: No
  Sender: FDA-Public Use
  Company Number: None

PATIENT
  Age: 32 Year
  Sex: Male
  Weight: 81.65 kg

DRUGS (1)
  1. COSENTYX [Suspect]
     Active Substance: SECUKINUMAB
     Indication: PSORIATIC ARTHROPATHY
     Dosage: INJECT 300MG (2PEN)S SUBCUTANEOUSLY EVERY 4   WEEKS AS DIRECTED
     Route: 058
     Dates: start: 201901

REACTIONS (2)
  - Facial bones fracture [None]
  - Sinusitis [None]
